FAERS Safety Report 9693574 (Version 3)
Quarter: 2014Q1

REPORT INFORMATION
  Report Type: Report from Study
  Country: US (occurrence: US)
  Receive Date: 20131118
  Receipt Date: 20140306
  Transmission Date: 20141002
  Serious: Yes (Other)
  Sender: FDA-Public Use
  Company Number: US-TEVA-444729USA

PATIENT
  Age: 17 Year
  Sex: Female

DRUGS (2)
  1. CLARAVIS [Suspect]
     Dosage: 160 MILLIGRAM DAILY;
     Dates: start: 20130601, end: 20131104
  2. ORAL CONTRACEPTIVE NOS [Concomitant]

REACTIONS (1)
  - Unintended pregnancy [Recovered/Resolved]
